FAERS Safety Report 24945894 (Version 1)
Quarter: 2025Q1

REPORT INFORMATION
  Report Type: Spontaneous
  Country: US (occurrence: US)
  Receive Date: 20250209
  Receipt Date: 20250209
  Transmission Date: 20250409
  Serious: No
  Sender: ALKEM
  Company Number: US-ALKEM LABORATORIES LIMITED-US-ALKEM-2024-15924

PATIENT
  Sex: Male

DRUGS (2)
  1. FINASTERIDE [Suspect]
     Active Substance: FINASTERIDE
     Indication: Product used for unknown indication
     Route: 065
  2. FINASTERIDE [Suspect]
     Active Substance: FINASTERIDE
     Route: 065

REACTIONS (1)
  - Adverse drug reaction [Unknown]
